FAERS Safety Report 8715877 (Version 8)
Quarter: 2012Q4

REPORT INFORMATION
  Report Type: 
  Country: JP (occurrence: JP)
  Receive Date: 20120809
  Receipt Date: 20121206
  Transmission Date: 20130627
  Serious: Yes (Life-Threatening, Other)
  Sender: FDA-Public Use
  Company Number: JP-PFIZER INC-2012189521

PATIENT
  Age: 50 Year
  Sex: Male

DRUGS (1)
  1. UNASYN-S [Suspect]
     Indication: PNEUMONIA
     Dosage: 3 g, 1x/day
     Route: 041
     Dates: start: 20120807, end: 20120820

REACTIONS (1)
  - Interstitial lung disease [Not Recovered/Not Resolved]
